FAERS Safety Report 17131091 (Version 2)
Quarter: 2020Q2

REPORT INFORMATION
  Report Type: Spontaneous
  Country: US (occurrence: US)
  Receive Date: 20191209
  Receipt Date: 20200428
  Transmission Date: 20200713
  Serious: Yes (Life-Threatening, Hospitalization)
  Sender: FDA-Public Use
  Company Number: US-JNJFOC-20190242078

PATIENT
  Age: 38 Year
  Sex: Male

DRUGS (1)
  1. INVOKANA [Suspect]
     Active Substance: CANAGLIFLOZIN
     Indication: TYPE 2 DIABETES MELLITUS
     Route: 048

REACTIONS (4)
  - Fournier^s gangrene [Recovering/Resolving]
  - Septic shock [Recovering/Resolving]
  - Acute kidney injury [Recovering/Resolving]
  - Acute respiratory failure [Recovering/Resolving]

NARRATIVE: CASE EVENT DATE: 201512
